FAERS Safety Report 5464810-4 (Version None)
Quarter: 2007Q3

REPORT INFORMATION
  Report Type: 
  Country: None (occurrence: None)
  Receive Date: 20070921
  Receipt Date: 20070911
  Transmission Date: 20080115
  Serious: Yes (Hospitalization)
  Sender: FDA-Public Use
  Company Number: FR-PFIZER INC-2007075904

PATIENT
  Age: 55 Year
  Sex: Female
  Weight: 52 kg

DRUGS (7)
  1. MISOPROSTOL [Suspect]
     Indication: PEPTIC ULCER
     Dosage: DAILY DOSE:200MCG-FREQ:BID
     Route: 048
     Dates: start: 20070206, end: 20070207
  2. INIPOMP [Suspect]
     Indication: PEPTIC ULCER
     Dosage: TEXT:1 DF-FREQ:QD
     Route: 048
     Dates: start: 20070205, end: 20070207
  3. VENLAFAXINE HCL [Suspect]
     Indication: DEPRESSION
     Dosage: DAILY DOSE:50MG-FREQ:BID
     Route: 048
     Dates: start: 20061115, end: 20070202
  4. VENLAFAXINE HCL [Suspect]
     Dosage: DAILY DOSE:50MG-FREQ:FREQUENCY: 2 IN 1 DAYS
     Route: 048
     Dates: start: 20070205, end: 20070207
  5. ETANERCEPT [Suspect]
     Indication: POLYARTHRITIS
     Dosage: TEXT:1 DF-FREQ:2 IN 1 WEEKS
     Route: 058
     Dates: start: 20030605, end: 20070207
  6. MORPHINE SULFATE [Concomitant]
  7. ARTHROTEC [Concomitant]
     Dates: start: 20060615, end: 20070206

REACTIONS (1)
  - NEUTROPENIA [None]
